FAERS Safety Report 18933272 (Version 1)
Quarter: 2021Q1

REPORT INFORMATION
  Report Type: Spontaneous
  Country: TW (occurrence: TW)
  Receive Date: 20210224
  Receipt Date: 20210224
  Transmission Date: 20210420
  Serious: Yes (Death, Hospitalization)
  Sender: FDA-Public Use
  Company Number: NVSC2021TW042626

PATIENT
  Age: 38 Year
  Sex: Male
  Weight: 60 kg

DRUGS (1)
  1. TEGRETOL XR [Suspect]
     Active Substance: CARBAMAZEPINE
     Indication: SPINAL PAIN
     Dosage: UNK
     Route: 065

REACTIONS (11)
  - Dyspnoea [Unknown]
  - Ocular hyperaemia [Fatal]
  - Rash [Fatal]
  - Feeling abnormal [Unknown]
  - Stevens-Johnson syndrome [Fatal]
  - Nasopharyngitis [Fatal]
  - Cardiac arrest [Fatal]
  - Mouth ulceration [Fatal]
  - Acute respiratory failure [Fatal]
  - Oropharyngeal pain [Fatal]
  - Hypoxic-ischaemic encephalopathy [Fatal]

NARRATIVE: CASE EVENT DATE: 20180415
